FAERS Safety Report 9483892 (Version 2)
Quarter: 2013Q3

REPORT INFORMATION
  Report Type: Spontaneous
  Country: IT (occurrence: IT)
  Receive Date: 20130828
  Receipt Date: 20130916
  Transmission Date: 20140515
  Serious: Yes (Hospitalization)
  Sender: FDA-Public Use
  Company Number: PHHY2013IT091812

PATIENT
  Age: 22 Year
  Sex: Female

DRUGS (4)
  1. CLARITHROMYCIN [Suspect]
     Indication: EAR INFECTION
     Dosage: 1 DF (TOTAL DOSAGE OF ONE POSOLOGIC UNIT)
     Route: 048
     Dates: start: 20130816, end: 20130816
  2. PARACETAMOL [Suspect]
     Indication: EAR INFECTION
     Dosage: 1 DF (TOTAL DOSAGE OF ONE POSOLOGIC UNIT)
     Route: 048
     Dates: start: 20130816, end: 20130816
  3. AMOXICILLIN/CLAVULANIC ACID [Concomitant]
     Dosage: 1 G, BID
  4. REUFLOR [Concomitant]
     Dosage: 1 DF, PER DAY

REACTIONS (1)
  - Urticaria [Recovering/Resolving]
